FAERS Safety Report 14203517 (Version 2)
Quarter: 2017Q4

REPORT INFORMATION
  Report Type: Spontaneous
  Country: US (occurrence: US)
  Receive Date: 20171120
  Receipt Date: 20171225
  Transmission Date: 20180321
  Serious: Yes (Hospitalization)
  Sender: FDA-Public Use
  Company Number: US-B.I. PHARMACEUTICALS,INC./RIDGEFIELD-2017-BI-061208

PATIENT
  Age: 74 Year
  Sex: Female

DRUGS (10)
  1. LOSARTAN. [Concomitant]
     Active Substance: LOSARTAN
     Indication: CARDIAC DISORDER
     Route: 065
  2. METOPROLOL. [Concomitant]
     Active Substance: METOPROLOL
     Indication: CARDIAC DISORDER
     Route: 065
  3. BUMETANIDE. [Concomitant]
     Active Substance: BUMETANIDE
     Indication: FLUID RETENTION
     Route: 065
  4. POTASSIUM [Concomitant]
     Active Substance: POTASSIUM
     Indication: BLOOD POTASSIUM DECREASED
     Route: 065
  5. SIMVASTATIN. [Concomitant]
     Active Substance: SIMVASTATIN
     Indication: BLOOD CHOLESTEROL INCREASED
     Route: 065
  6. PANTOPRAZOLE [Concomitant]
     Active Substance: PANTOPRAZOLE
     Indication: DYSPEPSIA
     Route: 065
  7. SPIRIVA [Suspect]
     Active Substance: TIOTROPIUM BROMIDE MONOHYDRATE
     Indication: CHRONIC OBSTRUCTIVE PULMONARY DISEASE
     Route: 055
     Dates: start: 2016
  8. TIKOSYN [Concomitant]
     Active Substance: DOFETILIDE
     Indication: CARDIAC DISORDER
     Route: 065
  9. ELIQUIS [Concomitant]
     Active Substance: APIXABAN
     Indication: ANTICOAGULANT THERAPY
     Route: 065
  10. FOLIC ACID. [Concomitant]
     Active Substance: FOLIC ACID
     Indication: BLOOD DISORDER
     Route: 065

REACTIONS (7)
  - Product physical issue [Unknown]
  - Vomiting [Recovered/Resolved]
  - Seizure [Recovered/Resolved]
  - Cardiac failure congestive [Unknown]
  - Loss of consciousness [Recovered/Resolved]
  - Blood potassium decreased [Not Recovered/Not Resolved]
  - Incorrect dose administered [Recovered/Resolved]

NARRATIVE: CASE EVENT DATE: 201604
